FAERS Safety Report 6449070-X (Version None)
Quarter: 2009Q4

REPORT INFORMATION
  Report Type: 
  Country: None (occurrence: None)
  Receive Date: 20091119
  Receipt Date: 20091119
  Transmission Date: 20100525
  Serious: No
  Sender: FDA-Public Use
  Company Number: None

PATIENT
  Sex: Female

DRUGS (1)
  1. FLUTICASONE PROPIONATE [Suspect]

REACTIONS (3)
  - DRUG INEFFECTIVE [None]
  - POSTNASAL DRIP [None]
  - SNEEZING [None]
